FAERS Safety Report 18648513 (Version 5)
Quarter: 2021Q2

REPORT INFORMATION
  Report Type: Spontaneous
  Country: US (occurrence: US)
  Receive Date: 20201222
  Receipt Date: 20210624
  Transmission Date: 20210717
  Serious: Yes (Other)
  Sender: FDA-Public Use
  Company Number: US-PFIZER INC-2020504856

PATIENT
  Age: 42 Year
  Sex: Female

DRUGS (5)
  1. LETROZOLE. [Concomitant]
     Active Substance: LETROZOLE
  2. HYDROCODONE BITARTRATE. [Concomitant]
     Active Substance: HYDROCODONE BITARTRATE
  3. IBRANCE [Suspect]
     Active Substance: PALBOCICLIB
     Indication: BREAST CANCER
     Dosage: 125 MG, CYCLIC(1 TABLET ONCE DAILY, 3 WEEKS ON AND ONE WEEK OFF)
     Route: 048
     Dates: start: 202010
  4. CALCIUM [Concomitant]
     Active Substance: CALCIUM
  5. IBRANCE [Suspect]
     Active Substance: PALBOCICLIB
     Dosage: 125 MG, CYCLIC (TAKE 1 TABLET ORALLY DAILY FOR 3 WEEKS ON AND ONE WEEK OFF)
     Route: 048

REACTIONS (9)
  - Menstruation irregular [Unknown]
  - Arthralgia [Unknown]
  - Epistaxis [Unknown]
  - Hypoaesthesia [Unknown]
  - Stomatitis [Unknown]
  - Pain in extremity [Unknown]
  - Haematochezia [Unknown]
  - Stress [Unknown]
  - Alopecia [Unknown]

NARRATIVE: CASE EVENT DATE: 20201112
